FAERS Safety Report 6600048-2 (Version None)
Quarter: 2010Q1

REPORT INFORMATION
  Report Type: 
  Country: None (occurrence: None)
  Receive Date: 20100224
  Receipt Date: 20100216
  Transmission Date: 20100710
  Serious: Yes (Hospitalization)
  Sender: FDA-Public Use
  Company Number: CA-AMGEN-QUU388240

PATIENT
  Sex: Male
  Weight: 72 kg

DRUGS (7)
  1. NEULASTA [Suspect]
     Indication: CHEMOTHERAPY
     Route: 058
     Dates: start: 20091010, end: 20100117
  2. ETOPOSIDE [Suspect]
     Dates: start: 20100112, end: 20100116
  3. IFOSFAMIDE [Suspect]
     Dates: start: 20100112, end: 20100116
  4. DEXAMETHASONE [Suspect]
     Dates: start: 20100112, end: 20100121
  5. VINCRISTINE [Concomitant]
  6. CYCLOPHOSPHAMIDE [Concomitant]
  7. ACTINOMYCIN D [Concomitant]

REACTIONS (3)
  - DRUG INEFFECTIVE [None]
  - ESCHERICHIA INFECTION [None]
  - FEBRILE NEUTROPENIA [None]
